FAERS Safety Report 19271477 (Version 1)
Quarter: 2021Q2

REPORT INFORMATION
  Report Type: Spontaneous
  Country: US (occurrence: US)
  Receive Date: 20210519
  Receipt Date: 20210519
  Transmission Date: 20210717
  Serious: No
  Sender: FDA-Public Use
  Company Number: US-CELLTRION INC.-2021US002533

PATIENT

DRUGS (1)
  1. TRUXIMA [Suspect]
     Active Substance: RITUXIMAB-ABBS
     Indication: PULMONARY HAEMORRHAGE
     Dosage: 1 GRAM 1 EVERY 6 MONTHS; THERAPY PLANNED 06/14/2021 (1 G EVERY 6 MONTHS)
     Dates: start: 20210114

REACTIONS (1)
  - Off label use [Unknown]
